FAERS Safety Report 21188518 (Version 1)
Quarter: 2022Q3

REPORT INFORMATION
  Report Type: Spontaneous
  Country: US (occurrence: US)
  Receive Date: 20220809
  Receipt Date: 20220809
  Transmission Date: 20221027
  Serious: No
  Sender: FDA-Public Use
  Company Number: US-IGSA-BIG0016766

PATIENT
  Age: 57 Year
  Sex: Male
  Weight: 77.914 kg

DRUGS (4)
  1. GAMUNEX-C [Suspect]
     Active Substance: HUMAN IMMUNOGLOBULIN G
     Indication: Neuritis
     Dosage: 800 MILLILITER, Q.M.T.
     Route: 042
     Dates: start: 20210805
  2. GAMUNEX-C [Suspect]
     Active Substance: HUMAN IMMUNOGLOBULIN G
     Dosage: 800 MILLILITER, Q.M.T.
     Route: 042
     Dates: start: 202109, end: 202109
  3. GAMUNEX-C [Suspect]
     Active Substance: HUMAN IMMUNOGLOBULIN G
     Dosage: 800 MILLILITER, Q.M.T.
     Route: 042
     Dates: start: 202110, end: 202110
  4. TRAMADOL [Concomitant]
     Active Substance: TRAMADOL
     Indication: Pain
     Dosage: 50 MILLIGRAM, QD
     Route: 048

REACTIONS (1)
  - Injection site reaction [Recovering/Resolving]

NARRATIVE: CASE EVENT DATE: 20210805
